FAERS Safety Report 11835311 (Version 3)
Quarter: 2016Q1

REPORT INFORMATION
  Report Type: Spontaneous
  Country: JP (occurrence: JP)
  Receive Date: 20151215
  Receipt Date: 20160323
  Transmission Date: 20160525
  Serious: Yes (Other)
  Sender: FDA-Public Use
  Company Number: JP-009507513-1512JPN006881

PATIENT
  Age: 71 Year
  Sex: Female

DRUGS (59)
  1. UNISIA [Concomitant]
     Active Substance: AMLODIPINE BESYLATE\CANDESARTAN CILEXETIL
     Dosage: UNK
     Dates: start: 20120222
  2. METGLUCO [Concomitant]
     Active Substance: METFORMIN HYDROCHLORIDE
     Dosage: 1500 MG, UNK
     Dates: start: 20120609, end: 20131118
  3. FLOMOX [Concomitant]
     Active Substance: CEFCAPENE PIVOXIL HYDROCHLORIDE HYDRATE
     Dosage: UNK
     Dates: start: 20121105, end: 20121114
  4. DAI-KENCHU-TO [Concomitant]
     Active Substance: MALTOSE
     Dosage: UNK
     Dates: start: 20120608, end: 201406
  5. CEROCRAL [Concomitant]
     Active Substance: IFENPRODIL
     Dosage: 40 MG, UNK
     Dates: start: 20130123, end: 20130416
  6. XALATAN [Concomitant]
     Active Substance: LATANOPROST
     Dosage: UNK
     Dates: start: 20120723, end: 201211
  7. CRAVIT [Concomitant]
     Active Substance: LEVOFLOXACIN
     Dosage: UNK
     Dates: start: 20120221, end: 20120228
  8. NEVANAC [Concomitant]
     Active Substance: NEPAFENAC
     Dosage: UNK
     Dates: start: 20121128, end: 201211
  9. NEUROTROPIN [Concomitant]
     Active Substance: NEUROTROPIN
     Dosage: UNK
     Dates: start: 20110329
  10. BLOPRESS [Concomitant]
     Active Substance: CANDESARTAN CILEXETIL
     Dosage: UNK
     Dates: start: 20110329, end: 20120221
  11. FLOMOX [Concomitant]
     Active Substance: CEFCAPENE PIVOXIL HYDROCHLORIDE HYDRATE
     Dosage: UNK
     Dates: start: 20120825, end: 20120904
  12. AMITIZA [Concomitant]
     Active Substance: LUBIPROSTONE
     Dosage: UNK
     Dates: start: 20150703
  13. NAUZELIN [Concomitant]
     Active Substance: DOMPERIDONE
     Dosage: 10 MG, UNK
     Dates: start: 20140701
  14. GLIMICRON [Concomitant]
     Active Substance: GLICLAZIDE
     Dosage: 40 MG, UNK
     Dates: start: 20110329, end: 20120124
  15. GLIMICRON [Concomitant]
     Active Substance: GLICLAZIDE
     Dosage: 20 MG, UNK
     Dates: start: 20120125, end: 20150605
  16. METGLUCO [Concomitant]
     Active Substance: METFORMIN HYDROCHLORIDE
     Dosage: 500 MG, UNK
     Dates: start: 20120124, end: 20120221
  17. METGLUCO [Concomitant]
     Active Substance: METFORMIN HYDROCHLORIDE
     Dosage: 1000 MG, UNK
     Dates: start: 20120320, end: 20120424
  18. FLOMOX [Concomitant]
     Active Substance: CEFCAPENE PIVOXIL HYDROCHLORIDE HYDRATE
     Dosage: UNK
     Dates: start: 20131015, end: 20131022
  19. GLACTIV [Suspect]
     Active Substance: SITAGLIPTIN
     Dosage: STRENGTH: 12.5 MG, 25 MG, 50 MG, 100 MG; 50 MG, QD
     Route: 048
     Dates: start: 20120122, end: 20151109
  20. METGLUCO [Concomitant]
     Active Substance: METFORMIN HYDROCHLORIDE
     Dosage: 1250 MG, UNK
     Dates: start: 20120425, end: 20140608
  21. FLOMOX [Concomitant]
     Active Substance: CEFCAPENE PIVOXIL HYDROCHLORIDE HYDRATE
     Dosage: UNK
     Dates: start: 20111226, end: 20111229
  22. GRACEVIT [Concomitant]
     Active Substance: SITAFLOXACIN
     Dosage: UNK
     Dates: start: 20131227, end: 201401
  23. FASTIC [Concomitant]
     Active Substance: NATEGLINIDE
     Dosage: UNK
     Dates: start: 20150704, end: 20160201
  24. CARDENALIN [Concomitant]
     Active Substance: DOXAZOSIN MESYLATE
     Dosage: 4 MG, UNK
     Dates: start: 20110329, end: 20130610
  25. GLACTIV [Suspect]
     Active Substance: SITAGLIPTIN
     Indication: TYPE 2 DIABETES MELLITUS
     Dosage: STRENGTH: 12.5 MG, 25 MG, 50 MG, 100 MG; 25 MG, QD
     Route: 048
     Dates: start: 20110827, end: 20120121
  26. LIVALO [Concomitant]
     Active Substance: PITAVASTATIN CALCIUM
     Dosage: 2 MG, UNK
     Dates: start: 20110329, end: 20120910
  27. METGLUCO [Concomitant]
     Active Substance: METFORMIN HYDROCHLORIDE
     Dosage: 750 MG, UNK
     Dates: start: 20120222, end: 20120319
  28. METGLUCO [Concomitant]
     Active Substance: METFORMIN HYDROCHLORIDE
     Dosage: 500 MG IN THE MORNING, 750 MG IN THE NOON, 500MG IN THE NIGHT
     Dates: start: 20131119, end: 20140117
  29. PLAVIX [Concomitant]
     Active Substance: CLOPIDOGREL BISULFATE
     Dosage: UNK
     Dates: start: 20130226
  30. CARNACULIN [Concomitant]
     Active Substance: KALLIDINOGENASE
     Dosage: 25 IU, UNK
     Dates: start: 20130417
  31. HYALEIN [Concomitant]
     Active Substance: HYALURONATE SODIUM
     Dosage: UNK
     Dates: start: 20110927
  32. LIVALO [Concomitant]
     Active Substance: PITAVASTATIN CALCIUM
     Dosage: 1 MG, UNK
     Dates: start: 20120911
  33. METGLUCO [Concomitant]
     Active Substance: METFORMIN HYDROCHLORIDE
     Dosage: 500 MG IN THE MORNING, 750 MG IN THE NOON, 750MG IN THE NIGHT
     Dates: start: 20140118, end: 20151208
  34. METGLUCO [Concomitant]
     Active Substance: METFORMIN HYDROCHLORIDE
     Dosage: 250 MG IN THE MORNING, 500 MG IN THE NOON, 500MG IN THE NIGHT
     Dates: start: 20151209
  35. BAKTAR [Concomitant]
     Active Substance: SULFAMETHOXAZOLE\TRIMETHOPRIM
     Dosage: UNK
     Dates: start: 20120309, end: 20120320
  36. GRACEVIT [Concomitant]
     Active Substance: SITAFLOXACIN
     Dosage: UNK
     Dates: start: 20131111, end: 20131116
  37. VESICARE [Concomitant]
     Active Substance: SOLIFENACIN SUCCINATE
     Dosage: UNK
     Dates: start: 20110329, end: 20120111
  38. VESICARE [Concomitant]
     Active Substance: SOLIFENACIN SUCCINATE
     Dosage: UNK
     Dates: start: 20120228, end: 20120308
  39. CEROCRAL [Concomitant]
     Active Substance: IFENPRODIL
     Dosage: 20 MG, UNK
     Dates: start: 20130417
  40. MOHRUS L [Concomitant]
     Active Substance: KETOPROFEN
     Dosage: UNK
     Dates: start: 20110329, end: 20120301
  41. ZEPOLAS [Concomitant]
     Dosage: UNK
     Dates: start: 20120302
  42. CRAVIT [Concomitant]
     Active Substance: LEVOFLOXACIN
     Dosage: UNK
     Dates: start: 20121114, end: 201301
  43. OMEPRAL [Concomitant]
     Active Substance: OMEPRAZOLE
     Dosage: UNK
     Dates: start: 20110329
  44. NORVASC [Concomitant]
     Active Substance: AMLODIPINE BESYLATE
     Dosage: UNK
     Dates: start: 20110329, end: 20120221
  45. BAKTAR [Concomitant]
     Active Substance: SULFAMETHOXAZOLE\TRIMETHOPRIM
     Dosage: UNK
     Dates: start: 20121115, end: 20121122
  46. CARDENALIN [Concomitant]
     Active Substance: DOXAZOSIN MESYLATE
     Dosage: 2 MG, UNK
     Dates: start: 20130611
  47. SEIBULE [Concomitant]
     Active Substance: MIGLITOL
     Dosage: UNK
     Dates: start: 20110828, end: 20151208
  48. CARNACULIN [Concomitant]
     Active Substance: KALLIDINOGENASE
     Dosage: 75 IU, UNK
     Dates: start: 20110329, end: 20130122
  49. CARNACULIN [Concomitant]
     Active Substance: KALLIDINOGENASE
     Dosage: 50 IU, UNK
     Dates: start: 20130123, end: 20130416
  50. FLOMOX [Concomitant]
     Active Substance: CEFCAPENE PIVOXIL HYDROCHLORIDE HYDRATE
     Dosage: UNK
     Dates: start: 20120111, end: 20120118
  51. FLOMOX [Concomitant]
     Active Substance: CEFCAPENE PIVOXIL HYDROCHLORIDE HYDRATE
     Dosage: UNK
     Dates: start: 20120301, end: 20120308
  52. FLOMOX [Concomitant]
     Active Substance: CEFCAPENE PIVOXIL HYDROCHLORIDE HYDRATE
     Dosage: UNK
     Dates: start: 20120625, end: 20120702
  53. BASEN OD [Concomitant]
     Active Substance: VOGLIBOSE
     Dosage: UNK
     Dates: start: 20110329, end: 20110827
  54. NAUZELIN [Concomitant]
     Active Substance: DOMPERIDONE
     Dosage: 15 MG, UNK
     Dates: start: 20110329, end: 20140630
  55. MERISLON [Concomitant]
     Active Substance: BETAHISTINE MESILATE
     Dosage: UNK
     Dates: start: 20110329
  56. CEROCRAL [Concomitant]
     Active Substance: IFENPRODIL
     Dosage: 60 MG, UNK
     Dates: start: 20110329, end: 20130122
  57. MYSLEE [Concomitant]
     Active Substance: ZOLPIDEM TARTRATE
     Dosage: UNK
     Dates: start: 20110329, end: 20120710
  58. PATANOL [Concomitant]
     Active Substance: OLOPATADINE HYDROCHLORIDE
     Dosage: UNK
     Dates: start: 20110927
  59. SANBETASON [Concomitant]
     Active Substance: DEXAMETHASONE
     Dosage: UNK
     Dates: start: 20121128, end: 201301

REACTIONS (1)
  - Seronegative arthritis [Recovered/Resolved]

NARRATIVE: CASE EVENT DATE: 201507
